FAERS Safety Report 8584746-X (Version None)
Quarter: 2012Q3

REPORT INFORMATION
  Report Type: 
  Country: None (occurrence: None)
  Receive Date: 20120810
  Receipt Date: 20120731
  Transmission Date: 20120928
  Serious: Yes (Hospitalization)
  Sender: FDA-Public Use
  Company Number: US-BAYER-2012-079065

PATIENT
  Age: 36 Year
  Sex: Female
  Weight: 93.424 kg

DRUGS (12)
  1. NASONEX [Concomitant]
     Dosage: 2 SPRAYS IN AM
     Route: 045
  2. ASTELIN [Concomitant]
     Dosage: 1 SPRAY IN AM
     Route: 045
  3. PERCOCET [Concomitant]
  4. BENTYL [Concomitant]
  5. OMEPRAZOLE [Concomitant]
     Dosage: 20 MG,1 DAILY
     Route: 048
     Dates: start: 20101029
  6. YAZ [Suspect]
     Indication: PREMENSTRUAL SYNDROME
  7. MUCINEX [Concomitant]
     Dosage: 1 TAB BID
     Route: 048
  8. SKELAXIN [Concomitant]
     Dosage: 50 MG, 1 TAB TID, DAILY AS NEEDED
     Route: 048
  9. ZYRTEC [Concomitant]
     Dosage: 10 MG, DAILY
     Route: 048
  10. TORADOL [Concomitant]
     Indication: PAIN
  11. MOTRIN [Concomitant]
     Indication: PAIN
     Dosage: 800 MG, EVERY 8 HOURS AS NEEDED
     Route: 048
  12. CIPROFLOXACIN [Concomitant]
     Indication: DIARRHOEA
     Dosage: 500 MG, DAILY
     Route: 048
     Dates: start: 20101029

REACTIONS (1)
  - PULMONARY EMBOLISM [None]
